FAERS Safety Report 12280264 (Version 1)
Quarter: 2016Q2

REPORT INFORMATION
  Report Type: Spontaneous
  Country: US (occurrence: US)
  Receive Date: 20160419
  Receipt Date: 20160419
  Transmission Date: 20160815
  Serious: Yes (Other)
  Sender: FDA-Public Use
  Company Number: US-BEH-2016059177

PATIENT
  Age: 71 Year
  Sex: Female
  Weight: 82 kg

DRUGS (22)
  1. HIZENTRA [Suspect]
     Active Substance: HUMAN IMMUNOGLOBULIN G
     Indication: IMMUNODEFICIENCY COMMON VARIABLE
     Route: 058
     Dates: start: 20120303
  2. CLOBETASOL [Concomitant]
     Active Substance: CLOBETASOL
  3. ESTRACE [Concomitant]
     Active Substance: ESTRADIOL
  4. MULTIVITAMIN [Concomitant]
     Active Substance: VITAMINS
  5. LISINOPRIL. [Concomitant]
     Active Substance: LISINOPRIL
  6. CRESTOR [Concomitant]
     Active Substance: ROSUVASTATIN CALCIUM
  7. HIZENTRA [Suspect]
     Active Substance: HUMAN IMMUNOGLOBULIN G
     Route: 058
     Dates: start: 20120303
  8. EPIPEN [Concomitant]
     Active Substance: EPINEPHRINE
  9. CITALOPRAM [Concomitant]
     Active Substance: CITALOPRAM HYDROBROMIDE
  10. ESTRADIOL. [Concomitant]
     Active Substance: ESTRADIOL
  11. PRILOSEC OTC [Concomitant]
     Active Substance: OMEPRAZOLE MAGNESIUM
  12. BAYER ASPIRIN [Concomitant]
     Active Substance: ASPIRIN
  13. LIDOCAIN/PRILOCAINE [Concomitant]
  14. CELEBREX [Concomitant]
     Active Substance: CELECOXIB
  15. COENZYME Q10 [Concomitant]
     Active Substance: UBIDECARENONE
  16. FISH OIL [Concomitant]
     Active Substance: FISH OIL
  17. DIPHENHYDRAMINE. [Concomitant]
     Active Substance: DIPHENHYDRAMINE
  18. VITAMIN B12 [Concomitant]
     Active Substance: CYANOCOBALAMIN
  19. VITAMIN C [Concomitant]
     Active Substance: ASCORBIC ACID
  20. L-M-X [Concomitant]
  21. GLUCOSAMIN-CHONDROITIN [Concomitant]
  22. LEVOTHYROXINE. [Concomitant]
     Active Substance: LEVOTHYROXINE

REACTIONS (1)
  - Gastric infection [Unknown]

NARRATIVE: CASE EVENT DATE: 20151222
